FAERS Safety Report 16354599 (Version 2)
Quarter: 2020Q1

REPORT INFORMATION
  Report Type: Report from Study
  Country: ZA (occurrence: ZA)
  Receive Date: 20190524
  Receipt Date: 20200302
  Transmission Date: 20200409
  Serious: Yes (Congenital Anomaly)
  Sender: FDA-Public Use
  Company Number: ZA-VIIV HEALTHCARE LIMITED-ZA2018GSK170603

PATIENT

DRUGS (4)
  1. DOLUTEGRAVIR [Suspect]
     Active Substance: DOLUTEGRAVIR
     Indication: HIV INFECTION
     Dosage: 50 MG, 1D
     Route: 064
     Dates: start: 20180208, end: 20200225
  2. FERROUS SULFATE. [Concomitant]
     Active Substance: FERROUS SULFATE
     Dosage: 170 MG, 1D
     Dates: start: 20180208, end: 20180621
  3. FOLIC ACID. [Concomitant]
     Active Substance: FOLIC ACID
     Dosage: 5 MG, 1D
     Dates: start: 20180208, end: 20180621
  4. EMTRICITABINE/TENOFOVIR DISOPROXIL FUMARATE [Concomitant]
     Active Substance: EMTRICITABINE\TENOFOVIR DISOPROXIL FUMARATE
     Indication: HIV INFECTION
     Dosage: 200/300 MG, QD
     Route: 064
     Dates: start: 20180208, end: 20200225

REACTIONS (1)
  - Strabismus [Not Recovered/Not Resolved]

NARRATIVE: CASE EVENT DATE: 2018
